FAERS Safety Report 9349462 (Version 2)
Quarter: 2013Q2

REPORT INFORMATION
  Report Type: Spontaneous
  Country: US (occurrence: US)
  Receive Date: 20130614
  Receipt Date: 20130614
  Transmission Date: 20140414
  Serious: Yes (Other)
  Sender: FDA-Public Use
  Company Number: US-JNJFOC-20100807776

PATIENT
  Sex: Male
  Weight: 95.26 kg

DRUGS (4)
  1. LEVAQUIN [Suspect]
     Indication: INFECTION
     Route: 048
     Dates: start: 200705, end: 200802
  2. LEVAQUIN [Suspect]
     Indication: CHILLS
     Route: 042
  3. CIPRO [Suspect]
     Indication: PARANASAL SINUS HYPERSECRETION
     Route: 048
  4. CIPRO [Suspect]
     Indication: PYREXIA
     Route: 048

REACTIONS (5)
  - Tendon rupture [Unknown]
  - Tendon rupture [Unknown]
  - Rotator cuff syndrome [Unknown]
  - Rotator cuff syndrome [Unknown]
  - Depression [Unknown]
